FAERS Safety Report 11047217 (Version 1)
Quarter: 2015Q2

REPORT INFORMATION
  Report Type: Spontaneous
  Country: US (occurrence: US)
  Receive Date: 20150420
  Receipt Date: 20150420
  Transmission Date: 20150821
  Serious: Yes (Other)
  Sender: FDA-Public Use
  Company Number: US-PFIZER INC-2015129768

PATIENT

DRUGS (1)
  1. SIROLIMUS. [Suspect]
     Active Substance: SIROLIMUS
     Dosage: UNK

REACTIONS (1)
  - Gastrointestinal disorder [Unknown]
